FAERS Safety Report 22253908 (Version 1)
Quarter: 2023Q2

REPORT INFORMATION
  Report Type: Report from Study
  Country: CA (occurrence: CA)
  Receive Date: 20230426
  Receipt Date: 20230426
  Transmission Date: 20230722
  Serious: Yes (Other)
  Sender: FDA-Public Use
  Company Number: CA-JNJFOC-20230371644

PATIENT
  Age: 13 Year
  Sex: Male
  Weight: 57 kg

DRUGS (6)
  1. REMICADE [Suspect]
     Active Substance: INFLIXIMAB
     Indication: Colitis ulcerative
     Dosage: 10 MG/KG
     Route: 041
     Dates: start: 20200929
  2. REMICADE [Suspect]
     Active Substance: INFLIXIMAB
     Route: 041
     Dates: start: 2023
  3. MESALAMINE [Concomitant]
     Active Substance: MESALAMINE
     Indication: Product used for unknown indication
     Route: 065
  4. FERROUS SULFATE [Concomitant]
     Active Substance: FERROUS SULFATE
     Indication: Product used for unknown indication
     Route: 065
  5. VALPROIC ACID [Concomitant]
     Active Substance: VALPROIC ACID
     Indication: Product used for unknown indication
     Route: 065
  6. LORAZEPAM [Concomitant]
     Active Substance: LORAZEPAM
     Indication: Product used for unknown indication
     Route: 065

REACTIONS (8)
  - Rectal haemorrhage [Recovering/Resolving]
  - Epistaxis [Recovering/Resolving]
  - Gastrointestinal inflammation [Unknown]
  - Agitation [Unknown]
  - Discomfort [Unknown]
  - Drug level abnormal [Unknown]
  - Pain [Unknown]
  - Anaemia [Unknown]

NARRATIVE: CASE EVENT DATE: 20230210
